FAERS Safety Report 6065628-4 (Version None)
Quarter: 2009Q1

REPORT INFORMATION
  Report Type: 
  Country: None (occurrence: None)
  Receive Date: 20090130
  Receipt Date: 20090120
  Transmission Date: 20090719
  Serious: Yes (Disabling)
  Sender: FDA-Public Use
  Company Number: 100#03#2009-00253

PATIENT
  Age: 52 Year
  Sex: Male

DRUGS (2)
  1. CITALOPRAM HYDROBROMIDE [Suspect]
     Indication: DEPRESSION
     Dosage: 20 MG TWICE DAILY ORAL
     Route: 048
     Dates: start: 20060101, end: 20081204
  2. DIAZEPAM [Concomitant]

REACTIONS (5)
  - FATIGUE [None]
  - HAEMATURIA [None]
  - MICTURITION URGENCY [None]
  - POLLAKIURIA [None]
  - POLYURIA [None]
